FAERS Safety Report 15452265 (Version 2)
Quarter: 2018Q4

REPORT INFORMATION
  Report Type: Spontaneous
  Country: PT (occurrence: PT)
  Receive Date: 20181001
  Receipt Date: 20181008
  Transmission Date: 20190204
  Serious: Yes (Life-Threatening, Hospitalization, Other)
  Sender: FDA-Public Use
  Company Number: PT-MYLANLABS-2018M1051912

PATIENT
  Age: 90 Year
  Sex: Male

DRUGS (6)
  1. AMOXICILLIN/CLAVULANIC ACID [Suspect]
     Active Substance: AMOXICILLIN\CLAVULANIC ACID
     Indication: RESPIRATORY TRACT INFECTION
     Dosage: UNK UNK, UNKNOWN FREQ.
     Route: 048
  2. CIPROFLOXACIN. [Concomitant]
     Active Substance: CIPROFLOXACIN
     Indication: URINARY TRACT INFECTION
     Dosage: 500 MG, BID
     Route: 065
     Dates: start: 20150106
  3. AMOXICILLIN/CLAVULANIC ACID [Suspect]
     Active Substance: AMOXICILLIN\CLAVULANIC ACID
     Indication: ANURIA
     Dosage: 1000 MG, BID (EVERY 12 HOURS (875 + 125 MG 12H / 12H, 8 DAYS))
     Route: 048
     Dates: start: 20150210
  4. AMOXICILLIN/CLAVULANIC ACID [Suspect]
     Active Substance: AMOXICILLIN\CLAVULANIC ACID
     Indication: CYSTITIS
     Dosage: UNK
     Route: 048
  5. AMOXICILLIN/CLAVULANIC ACID [Suspect]
     Active Substance: AMOXICILLIN\CLAVULANIC ACID
     Dosage: 1 DF, BID EVERY 12 HOURS (875 + 125 MG 12H / 12H, 8 DAYS)
     Route: 048
     Dates: start: 20150210
  6. CIPROFLOXACIN. [Concomitant]
     Active Substance: CIPROFLOXACIN
     Indication: RESPIRATORY TRACT INFECTION
     Dosage: UNK UNK, UNKNOWN FREQ.
     Route: 065

REACTIONS (8)
  - Urinary tract infection pseudomonal [Recovered/Resolved]
  - Multiple-drug resistance [Unknown]
  - Pathogen resistance [Unknown]
  - Vomiting [Recovered/Resolved]
  - Gastritis bacterial [Recovered/Resolved]
  - Diarrhoea [Recovered/Resolved]
  - Gastritis [Recovered/Resolved]
  - Abdominal pain [Recovered/Resolved]

NARRATIVE: CASE EVENT DATE: 20150302
